FAERS Safety Report 9376145 (Version 3)
Quarter: 2013Q3

REPORT INFORMATION
  Report Type: Spontaneous
  Country: US (occurrence: US)
  Receive Date: 20130630
  Receipt Date: 20130827
  Transmission Date: 20140515
  Serious: No
  Sender: FDA-Public Use
  Company Number: US-009507513-1306USA013220

PATIENT
  Age: 29 Year
  Sex: Female
  Weight: 93.42 kg

DRUGS (4)
  1. NEXPLANON [Suspect]
     Indication: CONTRACEPTION
     Dosage: 1 IMPLANT
     Route: 059
     Dates: start: 20130425
  2. LAMICTAL [Concomitant]
     Dosage: 25 MG QD
     Route: 048
  3. CILEX (CITALOPRAM HYDROBROMIDE) [Concomitant]
     Dosage: 20 MG QD
  4. ABILIFY [Concomitant]
     Dosage: 2 MG, UNK
     Route: 048

REACTIONS (3)
  - Injection site reaction [Not Recovered/Not Resolved]
  - Implant site pain [Not Recovered/Not Resolved]
  - Hypokinesia [Not Recovered/Not Resolved]
